FAERS Safety Report 5466817-X (Version None)
Quarter: 2007Q3

REPORT INFORMATION
  Report Type: 
  Country: None (occurrence: None)
  Receive Date: 20070924
  Receipt Date: 20070924
  Transmission Date: 20080115
  Serious: Yes (Other)
  Sender: FDA-Public Use
  Company Number: None

PATIENT
  Sex: Male
  Weight: 20.4119 kg

DRUGS (2)
  1. PULMICORT FLEXHALER [Suspect]
     Indication: ASTHMA
     Dosage: 180 MCG  2 X PER DAY  INHAL
     Route: 055
     Dates: start: 20070625, end: 20070626
  2. PULMICORT FLEXHALER [Suspect]
     Indication: ASTHMA
     Dosage: 180 MCG  2 X PER DAY  INHAL
     Route: 055
     Dates: start: 20070909, end: 20070913

REACTIONS (4)
  - ASTHENIA [None]
  - HYPERSOMNIA [None]
  - PYREXIA [None]
  - TREMOR [None]
